FAERS Safety Report 12437395 (Version 1)
Quarter: 2016Q2

REPORT INFORMATION
  Report Type: Spontaneous
  Country: IT (occurrence: IT)
  Receive Date: 20160606
  Receipt Date: 20160606
  Transmission Date: 20160815
  Serious: Yes (Other)
  Sender: FDA-Public Use
  Company Number: IT-ACTAVIS-2016-11700

PATIENT
  Age: 73 Year
  Sex: Female
  Weight: 45 kg

DRUGS (3)
  1. FLUOROURCIL [Suspect]
     Active Substance: FLUOROURACIL
     Indication: PANCREATIC CARCINOMA
     Dosage: 419 MG, CYCLICAL
     Route: 040
     Dates: start: 20160502, end: 20160502
  2. FLUOROURCIL [Suspect]
     Active Substance: FLUOROURACIL
     Dosage: 2515 MG, CYCLICAL
     Route: 041
     Dates: start: 20160502, end: 20160502
  3. IRINOTECAN (UNKNOWN) [Suspect]
     Active Substance: IRINOTECAN
     Indication: PANCREATIC CARCINOMA
     Dosage: 188 MG, CYCLICAL
     Route: 042
     Dates: start: 20160502, end: 20160502

REACTIONS (1)
  - Neutropenia [Recovered/Resolved]

NARRATIVE: CASE EVENT DATE: 20160518
